FAERS Safety Report 22143770 (Version 1)
Quarter: 2023Q1

REPORT INFORMATION
  Report Type: Spontaneous
  Country: SI (occurrence: SI)
  Receive Date: 20230327
  Receipt Date: 20230327
  Transmission Date: 20230418
  Serious: Yes (Hospitalization, Other)
  Sender: FDA-Public Use
  Company Number: None

PATIENT
  Age: 75 Year
  Sex: Female

DRUGS (4)
  1. JARDIANCE [Suspect]
     Active Substance: EMPAGLIFLOZIN
     Indication: Type 2 diabetes mellitus
     Route: 048
     Dates: start: 20221228, end: 20230113
  2. Trajenta  5 MG [Concomitant]
     Indication: Product used for unknown indication
  3. Amlopin  5 MG [Concomitant]
     Indication: Product used for unknown indication
  4. Sortis  10 MG [Concomitant]
     Indication: Product used for unknown indication

REACTIONS (2)
  - Escherichia infection [Recovering/Resolving]
  - Urosepsis [Recovering/Resolving]

NARRATIVE: CASE EVENT DATE: 20230113
